FAERS Safety Report 9301740 (Version 1)
Quarter: 2013Q2

REPORT INFORMATION
  Report Type: Spontaneous
  Country: CA (occurrence: CA)
  Receive Date: 20130521
  Receipt Date: 20130521
  Transmission Date: 20140414
  Serious: Yes (Hospitalization)
  Sender: FDA-Public Use
  Company Number: CA-GILEAD-2012-0064122

PATIENT
  Sex: Female

DRUGS (10)
  1. AMBRISENTAN [Suspect]
     Indication: PULMONARY HYPERTENSION
     Dosage: 10 MG, QD
     Route: 048
     Dates: start: 201110
  2. COUMADIN                           /00014802/ [Concomitant]
  3. ADCIRCA [Concomitant]
  4. EFFEXOR [Concomitant]
  5. LANOXIN [Concomitant]
  6. LASIX                              /00032601/ [Concomitant]
  7. COZAAR [Concomitant]
  8. IRON [Concomitant]
  9. ROBAXACET [Concomitant]
  10. OXYGEN [Concomitant]
     Dosage: UNK, PRN

REACTIONS (3)
  - Rib fracture [Unknown]
  - Pain in extremity [Recovered/Resolved]
  - Varicose vein [Unknown]
